FAERS Safety Report 4840136-4 (Version None)
Quarter: 2005Q4

REPORT INFORMATION
  Report Type: 
  Country: None (occurrence: None)
  Receive Date: 20051125
  Receipt Date: 20051114
  Transmission Date: 20060501
  Serious: Yes (Other)
  Sender: FDA-Public Use
  Company Number: 2005155273

PATIENT
  Age: 1 Year
  Sex: Male
  Weight: 16.7831 kg

DRUGS (1)
  1. CHILDREN'S PEDIACARE LONG ACTING COUGH PLUS COLD (PSEUDOEPHEDRINE,  DE [Suspect]
     Indication: ACCIDENTAL EXPOSURE
     Dosage: LESS THAN HALF A BOTTLE ONCE, ORAL
     Route: 048
     Dates: start: 20051114, end: 20051114

REACTIONS (2)
  - ACCIDENTAL DRUG INTAKE BY CHILD [None]
  - VOMITING [None]
